FAERS Safety Report 19485972 (Version 1)
Quarter: 2021Q3

REPORT INFORMATION
  Report Type: Spontaneous
  Country: US (occurrence: US)
  Receive Date: 20210702
  Receipt Date: 20210702
  Transmission Date: 20211014
  Serious: No
  Sender: FDA-Public Use
  Company Number: US-SA-2021SA213944

PATIENT
  Sex: Female

DRUGS (1)
  1. DUPIXENT [Suspect]
     Active Substance: DUPILUMAB
     Indication: SINUS POLYP
     Dosage: 300 MG, QOW
     Route: 058

REACTIONS (11)
  - Injection site swelling [Recovered/Resolved]
  - Feeling abnormal [Unknown]
  - Nasal congestion [Unknown]
  - Product use in unapproved indication [Unknown]
  - Sneezing [Recovering/Resolving]
  - Asthenia [Unknown]
  - Upper-airway cough syndrome [Unknown]
  - Injection site erythema [Recovered/Resolved]
  - Insomnia [Unknown]
  - Injection site inflammation [Recovered/Resolved]
  - Product dose omission issue [Unknown]
